FAERS Safety Report 9843837 (Version 1)
Quarter: 2013Q4

REPORT INFORMATION
  Report Type: Spontaneous
  Country: US (occurrence: None)
  Receive Date: 20131223
  Receipt Date: 20131223
  Transmission Date: 20140711
  Serious: Yes (Other)
  Sender: FDA-Public Use
  Company Number: 1000050637

PATIENT
  Sex: Female

DRUGS (1)
  1. LINZESS [Suspect]
     Route: 048

REACTIONS (1)
  - Diarrhoea [None]
